FAERS Safety Report 9163106 (Version 1)
Quarter: 2013Q1

REPORT INFORMATION
  Report Type: Spontaneous
  Country: US (occurrence: None)
  Receive Date: 20130313
  Receipt Date: 20130313
  Transmission Date: 20140127
  Serious: Yes (Hospitalization)
  Sender: FDA-Public Use
  Company Number: None

PATIENT
  Sex: Male
  Weight: 70.7 kg

DRUGS (6)
  1. PEG-ASPARAGINASE [Suspect]
     Dosage: DAY 15 RECEIVED
     Dates: start: 20130207
  2. VINCRISTINE SULFATE [Suspect]
     Dosage: RECEIVED ON DAY 22
     Dates: start: 20130214
  3. METHOTREXATE [Suspect]
     Dates: start: 20130214
  4. CYCLOPHOSPHAMIDE [Suspect]
     Dates: start: 20130307
  5. CYTARABINE [Suspect]
     Dates: start: 20130307
  6. MERCAPTOPURINE [Suspect]
     Dates: start: 20130307

REACTIONS (9)
  - Pancreatitis [None]
  - Capillary leak syndrome [None]
  - Ascites [None]
  - Pleural effusion [None]
  - Mental status changes [None]
  - Hypotension [None]
  - Diarrhoea [None]
  - Clostridium test positive [None]
  - Hyperglycaemia [None]
